FAERS Safety Report 7346094-5 (Version None)
Quarter: 2011Q1

REPORT INFORMATION
  Report Type: 
  Country: None (occurrence: None)
  Receive Date: 20110311
  Receipt Date: 20090307
  Transmission Date: 20110831
  Serious: Yes (Death, Hospitalization)
  Sender: FDA-Public Use
  Company Number: US-BAYER-200914499NA

PATIENT
  Sex: Male
  Weight: 86 kg

DRUGS (58)
  1. ZESTRIL [Concomitant]
     Dosage: 10-40 MG DAILY
     Route: 048
     Dates: start: 20060613
  2. NIFEDIPINE [Concomitant]
     Dosage: 30 MG, UNK
     Route: 048
     Dates: start: 20020316
  3. VANCOMYCIN [Concomitant]
     Dosage: 1 G, EVERY 24 HOURS
     Route: 042
     Dates: start: 20050801, end: 20050901
  4. MANNITOL [Concomitant]
     Dosage: 25%
     Route: 042
     Dates: start: 20050831, end: 20050831
  5. BACITRACIN [Concomitant]
     Dosage: 50000 U, UNK
     Route: 042
     Dates: start: 20050831, end: 20050831
  6. ATIVAN [Concomitant]
     Dosage: 2 MG, UNK
     Route: 048
     Dates: start: 20050831, end: 20050831
  7. SODIUM NITROPRUSSIDE [Concomitant]
     Dosage: 50MG/2ML
     Route: 041
     Dates: start: 20050831, end: 20050901
  8. OMNIPAQUE 140 [Concomitant]
     Dosage: 150 ML, UNK
  9. ADALAT CC [Concomitant]
     Dosage: 30-60 MG DAILY - TWICE DAILY
     Route: 048
     Dates: start: 20020316
  10. ZOCOR [Concomitant]
     Dosage: 40-80 MG DAILY
     Route: 048
     Dates: start: 20031105
  11. AMLODIPINE [Concomitant]
     Dosage: 2.5 MG, QD
     Route: 048
     Dates: start: 20050826, end: 20050831
  12. TECHNETIUM TC-99M [Concomitant]
     Dosage: TOTAL DOSE: 48.40 MCI
  13. LOPRESSOR [Concomitant]
     Dosage: 2.5-50 MG TWICE DAILY OR AS NEEDED
     Route: 048
     Dates: start: 20050823
  14. LOPRESSOR [Concomitant]
     Dosage: EVERY 2 HOURS AS NEEDED
     Route: 042
     Dates: start: 20050825
  15. LASIX [Concomitant]
     Dosage: 20-40 MG EVERY 2 HOURS AS NEEDED
     Route: 042
     Dates: start: 20050831
  16. APRESOLINE [Concomitant]
     Dosage: 10 MG, BID
     Dates: start: 20050901
  17. MIDAZOLAM [Concomitant]
     Dosage: 10 UNK, UNK
     Dates: start: 20050831, end: 20050831
  18. LEVOFLOXACIN [Concomitant]
     Dosage: 250 MG, QD
     Route: 048
     Dates: start: 20050902, end: 20050906
  19. ZOLPIDEM [Concomitant]
     Dosage: 10 MG, HS AS NEEDED
     Route: 048
     Dates: start: 20050825, end: 20050831
  20. HEPARIN SODIUM [Concomitant]
     Dosage: 1000-30000 UNITS
     Route: 042
     Dates: start: 20050831, end: 20050831
  21. NICARDIPINE HYDROCHLORIDE [Concomitant]
     Dosage: 25 MG, UNK
     Route: 042
     Dates: start: 20050824, end: 20050825
  22. ZESTRIL [Concomitant]
     Dosage: 10-40 MG DAILY
     Route: 048
     Dates: start: 19980605, end: 19980702
  23. GLUCOPHAGE [Concomitant]
     Dosage: 500-1000 MG, BID
     Route: 048
     Dates: start: 19960518
  24. PROTAMINE SULFATE [Concomitant]
     Dosage: 50 MG/ML
     Route: 042
     Dates: start: 20050831, end: 20050831
  25. NORMOSOL R [Concomitant]
     Dosage: 500 ML, UNK
     Dates: start: 20050831, end: 20050831
  26. TRASYLOL [Suspect]
     Indication: CORONARY ARTERY BYPASS
     Dosage: 200 ML, UNK
     Route: 042
     Dates: start: 20050831
  27. PRECOSE [Concomitant]
     Dosage: 25 MG, BEFORE MEALS
     Route: 048
     Dates: start: 20050823
  28. SULAR [Concomitant]
     Dosage: 20 MG, QD
     Route: 048
     Dates: start: 19980702
  29. APRESOLINE [Concomitant]
     Dosage: EVERY 4 HOURS AS NEEDED
     Route: 042
     Dates: start: 20050901
  30. MIDAZOLAM [Concomitant]
     Dosage: 5 ML, UNK
     Route: 042
     Dates: start: 20050824
  31. CARDIZEM [Concomitant]
     Dosage: 120-240 MG DAILY
     Route: 048
     Dates: start: 20050823, end: 20060613
  32. TRICOR [Concomitant]
     Dosage: 160-200 MG DAILY
     Route: 048
     Dates: start: 20010912, end: 20031105
  33. NITROGLYCERIN [Concomitant]
     Dosage: 1 G, UNK
     Route: 061
     Dates: start: 20050824, end: 20050906
  34. MORPHINE SULFATE [Concomitant]
     Dosage: 2-10MG EVERY 30 MINUTES AS NEEDED, IM/IV
     Dates: start: 20050831, end: 20050901
  35. HYPAQUE [Concomitant]
     Dosage: 60%, 50 ML
  36. TRASYLOL [Suspect]
     Dosage: 50 ML, Q1HR
     Route: 042
     Dates: start: 20050831, end: 20050831
  37. LOVENOX [Concomitant]
     Dosage: 85 MG, QD
     Route: 058
     Dates: start: 20050823, end: 20050824
  38. LASIX [Concomitant]
     Dosage: 20-40 MG DAILY
     Route: 048
     Dates: start: 20040101, end: 20070101
  39. FENTANYL [Concomitant]
     Dosage: 50 MCG/ML, UNK
     Route: 042
     Dates: start: 20050824, end: 20050824
  40. DILAUDID [Concomitant]
     Dosage: 0.5-1 MG EVERY 4 HOURS AS NEEDED
     Route: 042
     Dates: start: 20050824, end: 20050831
  41. DILAUDID [Concomitant]
     Dosage: 1 MG, Q4HR
     Route: 042
     Dates: start: 20050824, end: 20050831
  42. PROPOXYPHENE [Concomitant]
     Dosage: 65 MG EVERY 3-6 HOURS AS NEEDED
     Route: 048
     Dates: start: 20050824, end: 20050831
  43. NITROGLYCERIN [Concomitant]
     Dosage: 20 MG, UNK
     Route: 062
     Dates: start: 20050824, end: 20050906
  44. GLUCOTROL [Concomitant]
     Dosage: 5-10 MG, DAILY - TWICE DAILY
     Route: 048
     Dates: start: 19920221
  45. ACETYLSALICYLIC ACID (} 100 MG, FAST RELEASE) [Concomitant]
     Dosage: 81-325 MG DAILY
     Route: 048
     Dates: start: 19980424
  46. LOVENOX [Concomitant]
  47. FENTANYL [Concomitant]
     Dosage: 5 ML, UNK
     Dates: start: 20050831, end: 20050831
  48. LEVOFLOXACIN [Concomitant]
     Dosage: 250 MG, QD
     Route: 042
     Dates: start: 20050901, end: 20050905
  49. ZOSYN [Concomitant]
     Dosage: 2.25 G EVERY 6 HOURS
     Route: 042
     Dates: start: 20050902, end: 20050905
  50. PLAVIX [Concomitant]
     Dosage: 75 MG, UNK
     Route: 048
     Dates: start: 20050823
  51. NIFEDIPINE [Concomitant]
     Dosage: 60 MG, BID
     Route: 048
     Dates: start: 20020316
  52. NITROGLYCERIN [Concomitant]
     Dosage: 50MG/500ML
     Route: 042
     Dates: start: 20050831, end: 20050901
  53. NITROGLYCERIN [Concomitant]
     Dosage: 4.4 MG, UNK
     Route: 060
     Dates: start: 20050824, end: 20050906
  54. ALTACE [Concomitant]
     Dosage: 30 MG, QD
     Dates: start: 20010813
  55. ALTACE [Concomitant]
     Dosage: UNK
  56. TYLOX [Concomitant]
     Dosage: 1-2 TABS EVERY 4 HOURS AS NEEDED
     Route: 048
     Dates: start: 20050901
  57. HUMULIN R [Concomitant]
     Dosage: 2-10 UNITS PER SLIDING SCALE
     Route: 058
     Dates: start: 20050824, end: 20050905
  58. DOPAMINE [Concomitant]
     Dosage: 400MG/250ML AS NEEDED
     Route: 042
     Dates: start: 20050831, end: 20050901

REACTIONS (6)
  - INJURY [None]
  - UNEVALUABLE EVENT [None]
  - EMOTIONAL DISTRESS [None]
  - PAIN [None]
  - ANXIETY [None]
  - RENAL FAILURE [None]
